FAERS Safety Report 15689128 (Version 1)
Quarter: 2018Q4

REPORT INFORMATION
  Report Type: Spontaneous
  Country: JP (occurrence: JP)
  Receive Date: 20181205
  Receipt Date: 20181205
  Transmission Date: 20190205
  Serious: Yes (Death)
  Sender: FDA-Public Use
  Company Number: JP-CELGENEUS-JPN-20181110236

PATIENT
  Age: 49 Year
  Sex: Female

DRUGS (3)
  1. POMALYST [Suspect]
     Active Substance: POMALIDOMIDE
     Indication: PLASMA CELL MYELOMA
     Dosage: UNKNOWN
     Route: 048
  2. LENADEX [Suspect]
     Active Substance: DEXAMETHASONE ACETATE
     Indication: PLASMA CELL MYELOMA
     Dosage: UNKNOWN
     Route: 048
     Dates: start: 20181031, end: 20181117
  3. POMALYST [Suspect]
     Active Substance: POMALIDOMIDE
     Dosage: UNKNOWN
     Route: 048
     Dates: start: 20181031, end: 20181117

REACTIONS (1)
  - Plasma cell myeloma [Fatal]

NARRATIVE: CASE EVENT DATE: 20181118
